FAERS Safety Report 4919243-3 (Version None)
Quarter: 2006Q1

REPORT INFORMATION
  Report Type: 
  Country: None (occurrence: None)
  Receive Date: 20060222
  Receipt Date: 20060208
  Transmission Date: 20060701
  Serious: Yes (Other)
  Sender: FDA-Public Use
  Company Number: FR-ABBOTT-06P-056-0324578-00

PATIENT
  Sex: Female

DRUGS (4)
  1. HUMIRA 40 MG/ 0.8 ML PRE-FILLED SYRINGE [Suspect]
     Indication: RHEUMATOID ARTHRITIS
     Route: 058
     Dates: start: 20051001, end: 20060201
  2. HUMIRA 40 MG/ 0.8 ML PRE-FILLED SYRINGE [Suspect]
     Indication: POLYARTHRITIS
  3. METHOTREXATE [Concomitant]
     Indication: POLYARTHRITIS
     Route: 048
     Dates: end: 20060201
  4. METHOTREXATE [Concomitant]
     Indication: RHEUMATOID ARTHRITIS

REACTIONS (3)
  - ARTHRALGIA [None]
  - INJECTION SITE ERYTHEMA [None]
  - PRURITUS [None]
